FAERS Safety Report 3292721 (Version 3)
Quarter: 2020Q3

REPORT INFORMATION
  Report Type: Spontaneous
  Country: DE (occurrence: None)
  Receive Date: 19990621
  Receipt Date: 19990811
  Transmission Date: 20201104
  Serious: No
  Sender: FDA-Public Use
  Company Number: 9924952

PATIENT
  Age: 28 Year
  Sex: Male
  Weight: 65 kg

DRUGS (18)
  1. BELOC [METOPROLOL] [Concomitant]
     Active Substance: METOPROLOL
  2. DOPAMINE HYDROCHLORIDE. [Concomitant]
     Active Substance: DOPAMINE HYDROCHLORIDE
  3. LIPOFUNDIN [Concomitant]
     Active Substance: EGG PHOSPHOLIPIDS\GLYCERIN\SOYBEAN OIL
  4. HEPARIN [Concomitant]
     Active Substance: HEPARIN SODIUM
  5. GLUCOSE, LIQUID [Concomitant]
     Active Substance: GLUCOSE, LIQUID
  6. ARTERENOL [Concomitant]
     Active Substance: NOREPINEPHRINE HYDROCHLORIDE, (+/-)-
  7. CLONT (METRONIDAZOLE) [Concomitant]
     Active Substance: METRONIDAZOLE
  8. CERNEVIT [Concomitant]
     Active Substance: VITAMINS
  9. PASPERTIN [Concomitant]
  10. ARTERENOL [Concomitant]
     Active Substance: NOREPINEPHRINE HYDROCHLORIDE, (+/-)-
  11. LASIX [Concomitant]
     Active Substance: FUROSEMIDE
  12. NEPHROTECT [Concomitant]
     Active Substance: AMINO ACIDS, SOURCE UNSPECIFIED
  13. DIPEPTAMIN [Concomitant]
  14. BEPANTHEN [Concomitant]
  15. ALATROFLOXACIN MESYLATE. [Suspect]
     Active Substance: ALATROFLOXACIN MESYLATE
     Indication: INFECTION
     Dosage: 200.00 MG TOTAL:DAILY:INTRAVENOUS
     Route: 042
     Dates: start: 19990525, end: 19990531
  16. SPIZEF (CEFOTIAM HYDROCHLORIDE) [Concomitant]
     Active Substance: CEFOTIAM HYDROCHLORIDE
  17. PROSTIGMINE NOS [Concomitant]
     Active Substance: NEOSTIGMINE
  18. ANTRA [Concomitant]
     Active Substance: OMEPRAZOLE

REACTIONS (3)
  - Liver function test abnormal [None]
  - Cholestasis [None]
  - Blood bilirubin increased [None]

NARRATIVE: CASE EVENT DATE: 19990530
